FAERS Safety Report 7674044-0 (Version None)
Quarter: 2011Q3

REPORT INFORMATION
  Report Type: 
  Country: None (occurrence: None)
  Receive Date: 20110810
  Receipt Date: 20110802
  Transmission Date: 20111222
  Serious: Yes (Hospitalization, Other)
  Sender: FDA-Public Use
  Company Number: US-ABBOTT-11P-163-0843798-00

PATIENT
  Sex: Female

DRUGS (2)
  1. SIMCOR [Suspect]
     Indication: PRODUCT USED FOR UNKNOWN INDICATION
     Dates: start: 20110501
  2. ASPIRIN [Concomitant]
     Indication: PRODUCT USED FOR UNKNOWN INDICATION
     Dosage: QD
     Route: 048

REACTIONS (7)
  - UTERINE CANCER [None]
  - VAGINAL HAEMORRHAGE [None]
  - VAGINAL DISCHARGE [None]
  - FATIGUE [None]
  - FLUSHING [None]
  - RASH [None]
  - ABDOMINAL DISCOMFORT [None]
